FAERS Safety Report 6049950-3 (Version None)
Quarter: 2009Q1

REPORT INFORMATION
  Report Type: 
  Country: None (occurrence: None)
  Receive Date: 20090121
  Receipt Date: 20090109
  Transmission Date: 20090719
  Serious: Yes (Other)
  Sender: FDA-Public Use
  Company Number: 2008AP003485

PATIENT
  Age: 59 Year
  Sex: Female

DRUGS (10)
  1. CITALOPRAM HYDROBROMIDE [Suspect]
     Indication: ANXIETY
     Dosage: 20 MG;QD;PO, 10 MG; ;PO
     Route: 048
     Dates: start: 20081206, end: 20081208
  2. CITALOPRAM HYDROBROMIDE [Suspect]
     Indication: ANXIETY
     Dosage: 20 MG;QD;PO, 10 MG; ;PO
     Route: 048
     Dates: start: 20080827
  3. SIMVASTATIN [Concomitant]
  4. LEVOTHYROXINE SODIUM [Concomitant]
  5. RALOXIFENE HYDROCHLORIDE [Concomitant]
  6. .. [Concomitant]
  7. SERTRALINE HYDROCHLORIDE [Concomitant]
  8. .. [Concomitant]
  9. ESCITALOPRAM [Concomitant]
  10. ALPRAZOLAM [Concomitant]

REACTIONS (7)
  - AMNESIA [None]
  - DIZZINESS [None]
  - DRUG INEFFECTIVE [None]
  - FLIGHT OF IDEAS [None]
  - HYPOAESTHESIA [None]
  - NIGHTMARE [None]
  - PRURITUS [None]
